FAERS Safety Report 6123712-0 (Version None)
Quarter: 2009Q1

REPORT INFORMATION
  Report Type: 
  Country: None (occurrence: None)
  Receive Date: 20090318
  Receipt Date: 20090318
  Transmission Date: 20090719
  Serious: No
  Sender: FDA-Public Use
  Company Number: None

PATIENT
  Age: 82 Year
  Sex: Male
  Weight: 80.09 kg

DRUGS (2)
  1. HALOPERIDOL [Suspect]
     Dosage: 2.5 MG OTHER IM
     Route: 030
     Dates: start: 20080720, end: 20080727
  2. LORAZEPAM [Suspect]
     Dosage: 1 MG OTHER IM
     Route: 030
     Dates: start: 20080720, end: 20080727

REACTIONS (2)
  - FALL [None]
  - SOMNOLENCE [None]
